FAERS Safety Report 9471802 (Version 1)
Quarter: 2013Q3

REPORT INFORMATION
  Report Type: Report from Study
  Country: CA (occurrence: CA)
  Receive Date: 20130822
  Receipt Date: 20130822
  Transmission Date: 20140515
  Serious: Yes (Other)
  Sender: FDA-Public Use
  Company Number: CA-ROCHE-1264180

PATIENT
  Age: 50 Year
  Sex: Female

DRUGS (4)
  1. PEGASYS [Suspect]
     Indication: HEPATITIS C
     Route: 058
     Dates: start: 20130322, end: 20130802
  2. RIBAVIRIN [Suspect]
     Indication: HEPATITIS C
     Route: 065
     Dates: start: 20130322, end: 20130804
  3. RIBAVIRIN [Suspect]
     Route: 065
  4. INCIVEK [Suspect]
     Indication: HEPATITIS C
     Route: 065
     Dates: end: 201306

REACTIONS (6)
  - Crohn^s disease [Unknown]
  - Hepatic pain [Unknown]
  - Lung infection [Unknown]
  - Ear infection [Unknown]
  - Alopecia [Unknown]
  - Skin infection [Unknown]
